FAERS Safety Report 8062884-8 (Version None)
Quarter: 2012Q1

REPORT INFORMATION
  Report Type: 
  Country: None (occurrence: None)
  Receive Date: 20120123
  Receipt Date: 20120123
  Transmission Date: 20120608
  Serious: Yes (Other)
  Sender: FDA-Public Use
  Company Number: None

PATIENT
  Age: 55 Year
  Sex: Female
  Weight: 81.646 kg

DRUGS (1)
  1. EMEND [Suspect]
     Indication: NAUSEA
     Dosage: 80 MG
     Route: 048
     Dates: start: 20120119, end: 20120119

REACTIONS (4)
  - VOMITING [None]
  - PRODUCT SUBSTITUTION ISSUE [None]
  - DIARRHOEA [None]
  - NAUSEA [None]
